FAERS Safety Report 5904721-0 (Version None)
Quarter: 2008Q3

REPORT INFORMATION
  Report Type: 
  Country: None (occurrence: None)
  Receive Date: 20080909
  Receipt Date: 20080616
  Transmission Date: 20090109
  Serious: Yes (Hospitalization)
  Sender: FDA-Public Use
  Company Number: 163-20785-08050169

PATIENT
  Age: 79 Year
  Sex: Female

DRUGS (12)
  1. THALOMID [Suspect]
     Indication: MULTIPLE MYELOMA
     Dosage: 100 MG, QD, ORAL
     Route: 048
     Dates: start: 20080416, end: 20080418
  2. PREDNISONE [Concomitant]
  3. ASPIRIN TAB [Concomitant]
  4. LISINOPRIL [Concomitant]
  5. PREMARIN [Concomitant]
  6. ALPRAZOLAM [Concomitant]
  7. METFORMIN HCL [Concomitant]
  8. ZETIA [Concomitant]
  9. SULFATE (SULFATED CASTOR OIL) [Concomitant]
  10. FUROSEMIDE [Concomitant]
  11. KLOR-CON [Concomitant]
  12. GLIPIZIDE [Concomitant]

REACTIONS (5)
  - ASTHENIA [None]
  - PHARYNGEAL OEDEMA [None]
  - PYREXIA [None]
  - RENAL FAILURE [None]
  - TREMOR [None]
